FAERS Safety Report 17021488 (Version 1)
Quarter: 2019Q4

REPORT INFORMATION
  Report Type: Spontaneous
  Country: US (occurrence: US)
  Receive Date: 20191112
  Receipt Date: 20191112
  Transmission Date: 20200122
  Serious: No
  Sender: FDA-Public Use
  Company Number: US-PFIZER INC-2019485787

PATIENT

DRUGS (1)
  1. XELJANZ [Suspect]
     Active Substance: TOFACITINIB CITRATE
     Indication: COLITIS ULCERATIVE
     Dosage: 15 MG, 2X/DAY(XELJANZ 15MG BID)

REACTIONS (3)
  - Condition aggravated [Unknown]
  - Product use issue [Unknown]
  - Off label use [Unknown]
